FAERS Safety Report 9663067 (Version 2)
Quarter: 2013Q4

REPORT INFORMATION
  Report Type: Spontaneous
  Country: CA (occurrence: CA)
  Receive Date: 20131031
  Receipt Date: 20131031
  Transmission Date: 20140711
  Serious: Yes (Death)
  Sender: FDA-Public Use
  Company Number: CA-009507513-1208CAN010600

PATIENT
  Sex: Female

DRUGS (2)
  1. INTRON A [Suspect]
     Indication: T-CELL TYPE ACUTE LEUKAEMIA
     Dosage: 5 MILLION IU, Q3W
     Route: 058
     Dates: start: 20120803
  2. INTRON A [Suspect]
     Indication: LYMPHOMA

REACTIONS (1)
  - Death [Fatal]
